FAERS Safety Report 13558887 (Version 1)
Quarter: 2017Q2

REPORT INFORMATION
  Report Type: Spontaneous
  Country: FI (occurrence: FI)
  Receive Date: 20170518
  Receipt Date: 20170518
  Transmission Date: 20170830
  Serious: Yes (Other)
  Sender: FDA-Public Use
  Company Number: FI-AMGEN-FINSP2017073886

PATIENT
  Sex: Male

DRUGS (2)
  1. XGEVA [Suspect]
     Active Substance: DENOSUMAB
     Indication: PRODUCT USED FOR UNKNOWN INDICATION
     Dosage: UNK
     Route: 065
  2. SUTENT [Concomitant]
     Active Substance: SUNITINIB MALATE
     Dosage: 37.5 MG, 4 WEEKS ON AND 2 WEEKS OFF

REACTIONS (3)
  - Tooth abscess [Unknown]
  - Subcutaneous abscess [Unknown]
  - Gingival abscess [Unknown]
